FAERS Safety Report 8564751-X (Version None)
Quarter: 2012Q3

REPORT INFORMATION
  Report Type: 
  Country: None (occurrence: None)
  Receive Date: 20120803
  Receipt Date: 20120725
  Transmission Date: 20120928
  Serious: Yes (Death, Hospitalization)
  Sender: FDA-Public Use
  Company Number: FR-009507513-1205USA01891

PATIENT

DRUGS (6)
  1. TIENAM IV [Suspect]
     Route: 042
     Dates: start: 20120306, end: 20120309
  2. TACHOSIL [Suspect]
     Indication: HAEMORRHAGE
     Dosage: 3 UNK, UNK
     Dates: start: 20120309, end: 20120310
  3. AMOXICILLIN TRIHYDRATE [Suspect]
     Route: 042
     Dates: start: 20120219, end: 20120229
  4. TAZOBACTAM [Suspect]
     Route: 042
     Dates: start: 20120306, end: 20120308
  5. GENTAMICIN [Suspect]
     Route: 042
     Dates: start: 20120220, end: 20120229
  6. CEFOTAXIME SODIUM [Suspect]
     Route: 042
     Dates: start: 20120308, end: 20120312

REACTIONS (15)
  - LIVER DISORDER [None]
  - PULMONARY HAEMORRHAGE [None]
  - LUNG DISORDER [None]
  - COAGULATION FACTOR V LEVEL DECREASED [None]
  - ANTI FACTOR V ANTIBODY POSITIVE [None]
  - ENTEROCOCCAL SEPSIS [None]
  - KLEBSIELLA INFECTION [None]
  - BRONCHOPNEUMOPATHY [None]
  - HAEMOTHORAX [None]
  - CARDIOGENIC SHOCK [None]
  - HAEMATOMA [None]
  - WOUND [None]
  - RENAL FAILURE [None]
  - CITROBACTER INFECTION [None]
  - PULMONARY ALVEOLAR HAEMORRHAGE [None]
